FAERS Safety Report 6580584-8 (Version None)
Quarter: 2010Q1

REPORT INFORMATION
  Report Type: 
  Country: None (occurrence: None)
  Receive Date: 20100212
  Receipt Date: 20100125
  Transmission Date: 20100710
  Serious: Yes (Other)
  Sender: FDA-Public Use
  Company Number: PHHY2010US04403

PATIENT
  Sex: Male

DRUGS (9)
  1. DIOVAN [Suspect]
     Dosage: 80 MG, QD
  2. EXFORGE (VALSARTAN/AMLODIPINE) [Concomitant]
     Dosage: UNK MG, UNK
  3. MELOXICAM [Concomitant]
     Dosage: 7.5 MG, QD
  4. METOPROLOL [Concomitant]
     Dosage: 25 MG, TID
  5. PLAVIX [Concomitant]
     Dosage: 7.5 MG, QD
  6. PRAZOSIN HYDROCHLORIDE [Concomitant]
     Dosage: 5 MG, QD
  7. CENTRUM SILVER [Concomitant]
  8. VITAMIN B-12 [Concomitant]
     Dosage: TWICE IN AMONTH
  9. VITAMIN D [Concomitant]

REACTIONS (3)
  - BLOOD PRESSURE INCREASED [None]
  - HYDROCEPHALUS [None]
  - SURGERY [None]
